FAERS Safety Report 13260013 (Version 1)
Quarter: 2017Q1

REPORT INFORMATION
  Report Type: Spontaneous
  Country: US (occurrence: US)
  Receive Date: 20170222
  Receipt Date: 20170222
  Transmission Date: 20170428
  Serious: No
  Sender: FDA-Public Use
  Company Number: US-TEVA-660138USA

PATIENT
  Age: 5 Decade
  Sex: Male

DRUGS (1)
  1. AMPHETAMINE W/DEXTROAMPHETAMINE [Suspect]
     Active Substance: AMPHETAMINE SULFATE\DEXTROAMPHETAMINE
     Indication: ATTENTION DEFICIT/HYPERACTIVITY DISORDER
     Dosage: 90 MILLIGRAM DAILY;
     Route: 065

REACTIONS (3)
  - Sexual dysfunction [Unknown]
  - Weight decreased [Unknown]
  - Erectile dysfunction [Unknown]
